FAERS Safety Report 16928918 (Version 1)
Quarter: 2019Q4

REPORT INFORMATION
  Report Type: Spontaneous
  Country: US (occurrence: US)
  Receive Date: 20191017
  Receipt Date: 20191017
  Transmission Date: 20200122
  Serious: No
  Sender: FDA-Public Use
  Company Number: US-FRESENIUS KABI-FK201911312

PATIENT

DRUGS (1)
  1. FULVESTRANT INJECTION [Suspect]
     Active Substance: FULVESTRANT
     Indication: PRODUCT USED FOR UNKNOWN INDICATION
     Dosage: UNKNOWN
     Route: 065

REACTIONS (3)
  - Occupational physical problem [Recovered/Resolved]
  - Pain in extremity [Recovered/Resolved]
  - Skin indentation [Recovered/Resolved]
